FAERS Safety Report 18018041 (Version 3)
Quarter: 2020Q3

REPORT INFORMATION
  Report Type: Spontaneous
  Country: US (occurrence: US)
  Receive Date: 20200714
  Receipt Date: 20200819
  Transmission Date: 20201103
  Serious: No
  Sender: FDA-Public Use
  Company Number: US-AMGEN-USASP2020097571

PATIENT
  Age: 61 Year
  Sex: Male

DRUGS (13)
  1. OTEZLA [Suspect]
     Active Substance: APREMILAST
     Indication: PSORIASIS
     Dosage: UNK (STARTER PACK AS DIRECTED)
     Route: 048
     Dates: start: 202005
  2. OTEZLA [Suspect]
     Active Substance: APREMILAST
     Indication: PSORIATIC ARTHROPATHY
     Dosage: UNK
     Route: 048
     Dates: start: 2020
  3. MELOXICAM. [Concomitant]
     Active Substance: MELOXICAM
     Dosage: UNK
  4. OMEPRAZOLE. [Concomitant]
     Active Substance: OMEPRAZOLE
     Dosage: UNK
  5. TAMSULOSIN [Concomitant]
     Active Substance: TAMSULOSIN
     Dosage: UNK
  6. LIOTHYRONINE [Concomitant]
     Active Substance: LIOTHYRONINE
     Dosage: UNK
  7. NAFTIFINE. [Concomitant]
     Active Substance: NAFTIFINE HYDROCHLORIDE
     Dosage: UNK
  8. OTEZLA [Suspect]
     Active Substance: APREMILAST
     Dosage: 30 MILLIGRAM, BID
     Route: 048
     Dates: start: 20200617
  9. ADDERALL [Concomitant]
     Active Substance: AMPHETAMINE ASPARTATE\AMPHETAMINE SULFATE\DEXTROAMPHETAMINE SACCHARATE\DEXTROAMPHETAMINE SULFATE
     Indication: DISTURBANCE IN ATTENTION
     Dosage: 20 MILLIGRAM, QD
     Route: 065
     Dates: start: 2014
  10. AMFETAMINE SULFATE;DEXAMFETAMINE [Concomitant]
     Dosage: UNK
  11. ANASTROZOLE. [Concomitant]
     Active Substance: ANASTROZOLE
     Dosage: UNK
  12. LEVOTHYROXIN [Concomitant]
     Active Substance: LEVOTHYROXINE
     Dosage: UNK
  13. SULINDAC. [Concomitant]
     Active Substance: SULINDAC
     Dosage: UNK

REACTIONS (7)
  - Lethargy [Unknown]
  - Faeces soft [Not Recovered/Not Resolved]
  - Adverse reaction [Not Recovered/Not Resolved]
  - Back pain [Not Recovered/Not Resolved]
  - Apathy [Unknown]
  - Fatigue [Unknown]
  - Intentional product misuse [Unknown]

NARRATIVE: CASE EVENT DATE: 2020
